FAERS Safety Report 6045345-7 (Version None)
Quarter: 2009Q1

REPORT INFORMATION
  Report Type: 
  Country: None (occurrence: None)
  Receive Date: 20090116
  Receipt Date: 20090116
  Transmission Date: 20090719
  Serious: Yes (Hospitalization)
  Sender: FDA-Public Use
  Company Number: None

PATIENT
  Age: 68 Year
  Sex: Female
  Weight: 42.366 kg

DRUGS (3)
  1. SORAFENIB-BAYER CORPORATION [Suspect]
     Indication: PANCREATIC CARCINOMA METASTATIC
     Dosage: 200MG EVERY 12 HOURS PO
     Route: 048
     Dates: start: 20081222, end: 20090112
  2. OXALIPLATIN [Suspect]
     Dosage: 126MG DAY 1, DAY 15 IV
     Route: 042
     Dates: start: 20081222, end: 20090112
  3. XELODA [Suspect]
     Dosage: 2450MG EVERY8HRSX6DOSESPOQ
     Route: 048

REACTIONS (5)
  - DISEASE PROGRESSION [None]
  - MUCOSAL INFLAMMATION [None]
  - NAUSEA [None]
  - PAIN [None]
  - VOMITING [None]
